FAERS Safety Report 8113555-0 (Version None)
Quarter: 2012Q1

REPORT INFORMATION
  Report Type: 
  Country: None (occurrence: None)
  Receive Date: 20120131
  Receipt Date: 20120119
  Transmission Date: 20120608
  Serious: No
  Sender: FDA-Public Use
  Company Number: B0776705A

PATIENT
  Sex: Female
  Weight: 70.8519 kg

DRUGS (9)
  1. RANITIDINE HYDROCHLORIDE [Suspect]
     Indication: PREMEDICATION
     Dosage: 50 MG / PER DAY / INTRAVENOUS
     Route: 042
     Dates: start: 20111125, end: 20111125
  2. OXALIPLATIN [Suspect]
     Indication: COLORECTAL CANCER
     Dosage: 100 MG / PER DAY/ INTRAVENOUS
     Route: 042
     Dates: start: 20111125, end: 20111125
  3. CALCIUM SALT [Concomitant]
  4. MAGNESIUM SALT [Concomitant]
  5. PALONOSETRON HYDROCHLORIDE [Suspect]
     Indication: PREMEDICATION
     Dosage: 25 MG / PER DAY / INTRAVENOUS
     Route: 042
     Dates: start: 20111125, end: 20111125
  6. SYMBICORT [Concomitant]
  7. PREDNISOLONE SODIUM SUCCINATE INJ [Suspect]
     Indication: PREMEDICATION
     Dosage: 125 MG / PER DAY / INTRAVENOUS
     Route: 042
     Dates: start: 20111125, end: 20111125
  8. CLEMASTINE FUMARATE [Suspect]
     Indication: PREMEDICATION
     Dosage: 2 MG / PER DAY / INTRAVENOUS
     Route: 042
     Dates: start: 20111125, end: 20111125
  9. COLECALCIFEROL [Concomitant]

REACTIONS (2)
  - TYPE I HYPERSENSITIVITY [None]
  - BLOOD PRESSURE INCREASED [None]
